FAERS Safety Report 5170370-8 (Version None)
Quarter: 2006Q4

REPORT INFORMATION
  Report Type: 
  Country: None (occurrence: None)
  Receive Date: 20061212
  Receipt Date: 20061120
  Transmission Date: 20070319
  Serious: Yes (Death)
  Sender: FDA-Public Use
  Company Number: US-SANOFI-SYNTHELABO-A03200606980

PATIENT
  Sex: Male
  Weight: 58.96 kg

DRUGS (8)
  1. PLAVIX [Suspect]
     Indication: CARDIAC DISORDER
     Route: 048
     Dates: start: 20050101
  2. NOVOLIN R [Concomitant]
     Route: 058
     Dates: start: 20050101
  3. ATIVAN [Concomitant]
     Dosage: ONE TABLET BID REDUCED TO ONE TABLET QD
     Route: 048
     Dates: start: 20060501, end: 20061001
  4. NAMENDA [Concomitant]
     Route: 048
     Dates: start: 20051201
  5. SYNTHROID [Concomitant]
     Route: 048
     Dates: start: 20010101
  6. FLORINEF [Concomitant]
     Route: 048
     Dates: start: 20051201
  7. VYTORIN [Concomitant]
     Dosage: 10/20MG QD
     Route: 048
     Dates: start: 20020101
  8. ABILIFY [Concomitant]
     Dosage: INITIALLY TWO TABLETS PM AND THEN REDUCED TO ONE TABLET PM AND HALF TABLET AM
     Route: 048
     Dates: start: 20060801

REACTIONS (4)
  - ABASIA [None]
  - DEATH [None]
  - DISORIENTATION [None]
  - VASCULAR DEMENTIA [None]
